FAERS Safety Report 9870831 (Version 1)
Quarter: 2014Q1

REPORT INFORMATION
  Report Type: Spontaneous
  Country: IT (occurrence: None)
  Receive Date: 20140203
  Receipt Date: 20140203
  Transmission Date: 20141002
  Serious: Yes (Other)
  Sender: FDA-Public Use
  Company Number: 2014AP000960

PATIENT
  Age: 61 Year
  Sex: Female

DRUGS (1)
  1. CLARITHROMYCIN [Suspect]
     Indication: PNEUMONIA

REACTIONS (4)
  - Dermatomyositis [None]
  - Condition aggravated [None]
  - Immune thrombocytopenic purpura [None]
  - Haemoglobin decreased [None]
